FAERS Safety Report 5253856-7 (Version None)
Quarter: 2007Q1

REPORT INFORMATION
  Report Type: 
  Country: None (occurrence: None)
  Receive Date: 20070227
  Receipt Date: 20070212
  Transmission Date: 20070707
  Serious: Yes (Disabling)
  Sender: FDA-Public Use
  Company Number: 8021927

PATIENT
  Age: 36 Year
  Sex: Male
  Weight: 79.55 kg

DRUGS (5)
  1. KEPPRA [Suspect]
     Indication: CONVULSION
     Dosage: 500 MG 2/D PO
     Route: 048
     Dates: start: 20070108, end: 20070208
  2. KEPPRA [Suspect]
     Indication: CONVULSION
     Dosage: 750 MG 2/D PO
     Route: 048
     Dates: start: 20070208
  3. TYLENOL [Concomitant]
  4. ADVIL [Concomitant]
  5. DARVOCET [Concomitant]

REACTIONS (5)
  - APHASIA [None]
  - DIZZINESS [None]
  - FEELING DRUNK [None]
  - GAIT DISTURBANCE [None]
  - SPEECH DISORDER [None]
